FAERS Safety Report 4516450-9 (Version None)
Quarter: 2004Q4

REPORT INFORMATION
  Report Type: 
  Country: None (occurrence: None)
  Receive Date: 20041202
  Receipt Date: 20040826
  Transmission Date: 20050328
  Serious: No
  Sender: FDA-Public Use
  Company Number: US-GLAXOSMITHKLINE-A0523637A

PATIENT
  Age: 59 Year
  Sex: Female

DRUGS (5)
  1. AUGMENTIN '125' [Suspect]
     Route: 048
  2. ATENOLOL [Concomitant]
  3. DIGOXIN [Concomitant]
  4. OXYCONTIN [Concomitant]
  5. MULTI-VITAMIN [Concomitant]

REACTIONS (3)
  - ARTHRALGIA [None]
  - MYALGIA [None]
  - PRURITUS [None]
